FAERS Safety Report 20520569 (Version 1)
Quarter: 2022Q1

REPORT INFORMATION
  Report Type: Spontaneous
  Country: GB (occurrence: GB)
  Receive Date: 20220225
  Receipt Date: 20220225
  Transmission Date: 20220423
  Serious: Yes (Other)
  Sender: FDA-Public Use
  Company Number: GB-Stemline Therapeutics, Inc.-2022ST000022

PATIENT

DRUGS (2)
  1. ELZONRIS [Suspect]
     Active Substance: TAGRAXOFUSP-ERZS
     Indication: Blastic plasmacytoid dendritic cell neoplasia
     Dosage: CYCLE 1 DAY 1
     Route: 042
     Dates: start: 20220207
  2. ELZONRIS [Suspect]
     Active Substance: TAGRAXOFUSP-ERZS
     Dosage: CYCLE 1 DAY 2
     Route: 042
     Dates: start: 20220208, end: 20220208

REACTIONS (5)
  - Vascular device infection [Recovering/Resolving]
  - Staphylococcal bacteraemia [Recovering/Resolving]
  - Hypoalbuminaemia [Recovering/Resolving]
  - Pyrexia [Recovering/Resolving]
  - Weight increased [Recovering/Resolving]

NARRATIVE: CASE EVENT DATE: 20000209
